FAERS Safety Report 10160501 (Version 1)
Quarter: 2014Q2

REPORT INFORMATION
  Report Type: Spontaneous
  Country: US (occurrence: None)
  Receive Date: 20140507
  Receipt Date: 20140507
  Transmission Date: 20141212
  Serious: Yes (Other)
  Sender: FDA-Public Use
  Company Number: None

PATIENT
  Age: 77 Year
  Sex: Male
  Weight: 65.32 kg

DRUGS (3)
  1. ZITHROMAX Z-PAK [Suspect]
     Indication: RESPIRATORY DISORDER
     Dosage: 250 MG PER 500 ML OR 1 G)   250?5- DAY SUPPLY ( 6 PILLS)?TAKKE 2 ON DAY ONE, THEN 1/ DAY FOR NEXT 4 DAYS.
     Route: 048
     Dates: start: 20131104, end: 20131108
  2. MULTI-VITAMIN [Concomitant]
  3. FISH OIL [Concomitant]

REACTIONS (7)
  - Dizziness [None]
  - Balance disorder [None]
  - Palpitations [None]
  - Syncope [None]
  - Ataxia [None]
  - Atrial tachycardia [None]
  - Quality of life decreased [None]
